FAERS Safety Report 16538125 (Version 1)
Quarter: 2019Q3

REPORT INFORMATION
  Report Type: Spontaneous
  Country: US (occurrence: US)
  Receive Date: 20190708
  Receipt Date: 20190708
  Transmission Date: 20191004
  Serious: No
  Sender: FDA-Public Use
  Company Number: US-SA-2019SA182191

PATIENT

DRUGS (3)
  1. PREGABALIN. [Suspect]
     Active Substance: PREGABALIN
     Dosage: 2 DF, BID
  2. OXYCODONE [Suspect]
     Active Substance: OXYCODONE
  3. ARAVA [Suspect]
     Active Substance: LEFLUNOMIDE
     Dosage: UNK

REACTIONS (2)
  - Intervertebral disc degeneration [Unknown]
  - Hypersensitivity [Unknown]
